FAERS Safety Report 12468397 (Version 1)
Quarter: 2016Q2

REPORT INFORMATION
  Report Type: Report from Study
  Country: US (occurrence: US)
  Receive Date: 20160615
  Receipt Date: 20160615
  Transmission Date: 20160815
  Serious: Yes (Other)
  Sender: FDA-Public Use
  Company Number: US-ABBVIE-16K-163-1651162-00

PATIENT
  Age: 64 Year
  Sex: Female

DRUGS (1)
  1. HUMIRA [Suspect]
     Active Substance: ADALIMUMAB
     Indication: RHEUMATOID ARTHRITIS
     Route: 058

REACTIONS (10)
  - Vitreous floaters [Unknown]
  - Urinary tract infection [Unknown]
  - Vertigo [Unknown]
  - Fatigue [Unknown]
  - Muscular weakness [Unknown]
  - Insomnia [Unknown]
  - Myositis [Unknown]
  - Ureteric stenosis [Unknown]
  - Animal bite [Unknown]
  - Hyperhidrosis [Unknown]

NARRATIVE: CASE EVENT DATE: 201507
